FAERS Safety Report 6536886-4 (Version None)
Quarter: 2010Q1

REPORT INFORMATION
  Report Type: 
  Country: None (occurrence: None)
  Receive Date: 20100113
  Receipt Date: 20100105
  Transmission Date: 20100710
  Serious: Yes (Other)
  Sender: FDA-Public Use
  Company Number: US-AMGEN-QUU383643

PATIENT
  Sex: Female

DRUGS (6)
  1. NEULASTA [Suspect]
     Indication: CHEMOTHERAPY
  2. ADRIAMYCIN PFS [Concomitant]
  3. CYTOXAN [Concomitant]
  4. TAXOL [Concomitant]
  5. UNSPECIFIED ANTIEMETIC [Concomitant]
  6. EMEND [Concomitant]

REACTIONS (1)
  - PLATELET COUNT INCREASED [None]
